FAERS Safety Report 26157825 (Version 1)
Quarter: 2025Q4

REPORT INFORMATION
  Report Type: Spontaneous
  Country: US (occurrence: None)
  Receive Date: 20251215
  Receipt Date: 20251215
  Transmission Date: 20260118
  Serious: Yes (Hospitalization)
  Sender: FDA-CTU
  Company Number: None

PATIENT
  Age: 77 Year
  Sex: Male
  Weight: 88 kg

DRUGS (1)
  1. EMPAGLIFLOZIN [Suspect]
     Active Substance: EMPAGLIFLOZIN
     Indication: Type 2 diabetes mellitus
     Dosage: OTHER FREQUENCY : IN THE MORNING
     Route: 048
     Dates: start: 20231025, end: 20250911

REACTIONS (4)
  - Intertrigo [None]
  - Tinea cruris [None]
  - Erythema multiforme [None]
  - Urinary tract infection [None]

NARRATIVE: CASE EVENT DATE: 20250911
